FAERS Safety Report 5022356-1 (Version None)
Quarter: 2006Q2

REPORT INFORMATION
  Report Type: 
  Country: None (occurrence: None)
  Receive Date: 20060602
  Receipt Date: 20060127
  Transmission Date: 20061013
  Serious: Yes (Life-Threatening, Hospitalization)
  Sender: FDA-Public Use
  Company Number: PHEH2006US01450

PATIENT
  Age: 70 Year
  Sex: Female
  Weight: 109.3 kg

DRUGS (2)
  1. LOTREL [Suspect]
     Indication: HYPERTENSION
     Dosage: 10/20 MG, QD, ORAL
     Route: 048
     Dates: start: 20060118, end: 20060126
  2. DIOVAN HCT [Concomitant]

REACTIONS (3)
  - ANGIONEUROTIC OEDEMA [None]
  - LIFE SUPPORT [None]
  - TRACHEOSTOMY [None]
